FAERS Safety Report 7251132-4 (Version None)
Quarter: 2011Q1

REPORT INFORMATION
  Report Type: 
  Country: None (occurrence: None)
  Receive Date: 20110128
  Receipt Date: 20110119
  Transmission Date: 20110831
  Serious: Yes (Hospitalization)
  Sender: FDA-Public Use
  Company Number: US-JNJCH-2011001909

PATIENT
  Age: 65 Year
  Sex: Male
  Weight: 83.9 kg

DRUGS (6)
  1. FISH OIL [Concomitant]
     Indication: SUPPLEMENTATION THERAPY
     Dosage: TEXT:ONE TAB PER DAY
     Route: 048
  2. VITAMIN B [Concomitant]
     Indication: SUPPLEMENTATION THERAPY
     Dosage: TEXT:ONE TAB PER DAY
     Route: 048
  3. VITAMIN E [Concomitant]
     Indication: SUPPLEMENTATION THERAPY
     Dosage: TEXT:ONE TAB PER DAY
     Route: 048
  4. CALCIUM [Concomitant]
     Indication: SUPPLEMENTATION THERAPY
     Dosage: TEXT:ONE TAB PER DAY
     Route: 048
  5. MULTI-VITAMINS [Concomitant]
     Indication: SUPPLEMENTATION THERAPY
     Dosage: TEXT:ONE TAB PER DAY
     Route: 048
  6. ROGAINE [Suspect]
     Indication: ALOPECIA
     Dosage: TEXT:HALF A CAPFUL TWICE PER DAY
     Route: 061

REACTIONS (6)
  - SYNCOPE [None]
  - HEART RATE INCREASED [None]
  - DIZZINESS [None]
  - THERAPEUTIC RESPONSE UNEXPECTED [None]
  - OFF LABEL USE [None]
  - DRUG INEFFECTIVE [None]
